FAERS Safety Report 4313944-6 (Version None)
Quarter: 2004Q1

REPORT INFORMATION
  Report Type: 
  Country: None (occurrence: None)
  Receive Date: 20040309
  Receipt Date: 20040227
  Transmission Date: 20041129
  Serious: Yes (Life-Threatening)
  Sender: FDA-Public Use
  Company Number: 200410651JP

PATIENT
  Age: 76 Year
  Sex: Female
  Weight: 33.3 kg

DRUGS (2)
  1. TAXOTERE [Suspect]
     Indication: GASTRIC CANCER
     Route: 041
     Dates: start: 20040218, end: 20040218
  2. ANTINEOPLASTIC AND IMMUNOSUPPRESSIVE AGENTS [Suspect]
     Indication: GASTRIC CANCER
     Route: 048
     Dates: start: 20040218, end: 20040220

REACTIONS (8)
  - ANAEMIA [None]
  - ASTHENIA [None]
  - BLOOD GLUCOSE INCREASED [None]
  - CEREBRAL INFARCTION [None]
  - FALL [None]
  - HEMIPLEGIA [None]
  - PYREXIA [None]
  - VOMITING [None]
